FAERS Safety Report 23869319 (Version 1)
Quarter: 2024Q2

REPORT INFORMATION
  Report Type: Spontaneous
  Country: US (occurrence: None)
  Receive Date: 20240517
  Receipt Date: 20240517
  Transmission Date: 20240716
  Serious: Yes (Hospitalization)
  Sender: FDA-Public Use
  Company Number: None

PATIENT
  Age: 64 Year
  Sex: Male
  Weight: 53.7 kg

DRUGS (5)
  1. FLUOROURACIL [Suspect]
     Active Substance: FLUOROURACIL
     Dates: end: 20240425
  2. CAMPTOSAR [Suspect]
     Active Substance: IRINOTECAN HYDROCHLORIDE
     Dates: end: 20240425
  3. LEUCOVORIN CALCIUM [Suspect]
     Active Substance: LEUCOVORIN CALCIUM
     Dates: end: 20240425
  4. NIVOLUMAB [Suspect]
     Active Substance: NIVOLUMAB
     Dates: end: 20240425
  5. ELOXATIN [Suspect]
     Active Substance: OXALIPLATIN
     Dates: end: 20240424

REACTIONS (17)
  - Abdominal pain [None]
  - Nausea [None]
  - Dizziness [None]
  - Abdominal pain lower [None]
  - Abdominal pain upper [None]
  - Infection [None]
  - Abscess [None]
  - Proctitis [None]
  - Immune-mediated enterocolitis [None]
  - Large intestine infection [None]
  - Diarrhoea [None]
  - Norovirus test positive [None]
  - Vibrio test positive [None]
  - Hypokalaemia [None]
  - Enteritis [None]
  - Upper gastrointestinal haemorrhage [None]
  - Hypoaesthesia [None]

NARRATIVE: CASE EVENT DATE: 20240504
